FAERS Safety Report 8296486-5 (Version None)
Quarter: 2012Q2

REPORT INFORMATION
  Report Type: 
  Country: None (occurrence: None)
  Receive Date: 20120418
  Receipt Date: 20120416
  Transmission Date: 20120825
  Serious: Yes (Hospitalization, Other)
  Sender: FDA-Public Use
  Company Number: FR-PFIZER INC-2012086884

PATIENT
  Age: 81 Year
  Sex: Female

DRUGS (15)
  1. LYRICA [Suspect]
     Dosage: 25 MG, 3X/DAY
     Route: 048
     Dates: start: 20111201, end: 20120223
  2. ACETAMINOPHEN [Concomitant]
     Dosage: 500 MG UP TO 1 G, 4X/DAILY AS NEEDED
  3. FLIXOTIDE ^ALLEN + HANBURYS^ [Concomitant]
     Dosage: 250 UG, 2X/DAY
  4. REPAGLINIDE [Concomitant]
     Dosage: 1 MG, TWO TABLETS MORNING AND NOON AND 1 TABLE IN EVENING
  5. TRANSIPEG [Concomitant]
     Dosage: UNK, TWICE EVERY MORNING AS NEEDED
  6. LYRICA [Suspect]
     Indication: DIABETIC NEUROPATHY
     Dosage: 25 MG, 1X/DAY
     Route: 048
     Dates: start: 20110801, end: 20111201
  7. VALACICLOVIR [Suspect]
     Indication: HERPES ZOSTER
     Dosage: 500 MG, 3X/DAY
     Route: 048
     Dates: start: 20120221, end: 20120228
  8. GLUCOPHAGE [Concomitant]
     Dosage: 850 MG, 2X/DAY
  9. GLUCOPHAGE [Concomitant]
     Dosage: UNK
     Dates: start: 20120228
  10. ESIDRIX [Concomitant]
     Dosage: 25 MG, 1X/DAY
  11. XALATAN [Concomitant]
     Dosage: 0.005%, 1 DROP IN EACH EYE PER DAY
  12. BEVITINE [Concomitant]
     Dosage: 250 MG, 2X/DAY
  13. VALSARTAN [Concomitant]
     Dosage: 80 MG, TWICE IN THE MORNING
  14. ACTONEL [Concomitant]
     Dosage: 35 MG, WEEKLY
  15. LANTUS [Concomitant]
     Dosage: UNK

REACTIONS (14)
  - LOSS OF CONSCIOUSNESS [None]
  - ABDOMINAL PAIN [None]
  - RENAL FAILURE ACUTE [None]
  - MALAISE [None]
  - WEIGHT INCREASED [None]
  - CHEST PAIN [None]
  - PRESYNCOPE [None]
  - DIZZINESS [None]
  - APHASIA [None]
  - GENERAL PHYSICAL HEALTH DETERIORATION [None]
  - VOMITING [None]
  - BLOOD PRESSURE SYSTOLIC INCREASED [None]
  - FUNCTIONAL GASTROINTESTINAL DISORDER [None]
  - DECREASED APPETITE [None]
